FAERS Safety Report 8160546-X (Version None)
Quarter: 2012Q1

REPORT INFORMATION
  Report Type: 
  Country: None (occurrence: None)
  Receive Date: 20120223
  Receipt Date: 20120208
  Transmission Date: 20120608
  Serious: Yes (Other)
  Sender: FDA-Public Use
  Company Number: CHPA2012US002965

PATIENT
  Age: 60 Year
  Sex: Male

DRUGS (1)
  1. EXCEDRIN EXTRA STRENGTH TABLETS [Suspect]
     Indication: HEADACHE
     Dosage: 3 DF, ONCE/SINGLE
     Route: 048
     Dates: start: 20120115, end: 20120115

REACTIONS (6)
  - DYSPHEMIA [None]
  - GAIT DISTURBANCE [None]
  - MUSCLE TWITCHING [None]
  - DYSARTHRIA [None]
  - INCORRECT DOSE ADMINISTERED [None]
  - EXCESSIVE EYE BLINKING [None]
